FAERS Safety Report 6082946-4 (Version None)
Quarter: 2009Q1

REPORT INFORMATION
  Report Type: 
  Country: None (occurrence: None)
  Receive Date: 20090204
  Receipt Date: 20080227
  Transmission Date: 20090719
  Serious: Yes (Hospitalization)
  Sender: FDA-Public Use
  Company Number: 271228

PATIENT
  Age: 16 Year
  Sex: Female
  Weight: 68 kg

DRUGS (2)
  1. NOVOLOG [Suspect]
     Indication: TYPE 1 DIABETES MELLITUS
     Dosage: BASAL 1.2-2.0 LU + BOLUS CORRECTIONS, SUBCUTAN.-PUMP
     Route: 058
     Dates: start: 19950101
  2. LEVOTHYROXINE SODIUM [Concomitant]

REACTIONS (1)
  - DIABETIC KETOACIDOSIS [None]
